FAERS Safety Report 15661778 (Version 1)
Quarter: 2018Q4

REPORT INFORMATION
  Report Type: Report from Study
  Country: JP (occurrence: JP)
  Receive Date: 20181127
  Receipt Date: 20181127
  Transmission Date: 20190205
  Serious: Yes (Hospitalization)
  Sender: FDA-Public Use
  Company Number: JP-DSJP-DSJ-2018-149793

PATIENT

DRUGS (12)
  1. EDOXABAN [Suspect]
     Active Substance: EDOXABAN TOSYLATE
     Dosage: 30 MG, QD
     Route: 048
     Dates: start: 20161014
  2. PLAVIX [Concomitant]
     Active Substance: CLOPIDOGREL BISULFATE
     Dosage: 75MG/DAY
     Route: 048
  3. BASEN                              /01290601/ [Concomitant]
     Active Substance: VOGLIBOSE
     Dosage: 0.6MG/DAY
     Route: 048
  4. NESINA [Concomitant]
     Active Substance: ALOGLIPTIN BENZOATE
     Dosage: 25MG/DAY
     Route: 048
     Dates: end: 20160628
  5. RENIVACE [Concomitant]
     Active Substance: ENALAPRIL
     Dosage: 5MG/DAY
     Route: 048
  6. LIVALO [Concomitant]
     Active Substance: PITAVASTATIN CALCIUM
     Dosage: 1MG/DAY
     Route: 048
  7. DIGOSIN [Concomitant]
     Active Substance: DIGOXIN
     Indication: ATRIAL FIBRILLATION
     Dosage: 0.25MG/DAY
     Route: 048
  8. EQUMET [Concomitant]
     Active Substance: METFORMIN HYDROCHLORIDE\VILDAGLIPTIN
     Dosage: 1DF/DAY
     Route: 048
     Dates: start: 20160629
  9. METGLUCO [Concomitant]
     Active Substance: METFORMIN HYDROCHLORIDE
     Dosage: 1500MG/DAY
     Route: 048
     Dates: end: 20160628
  10. FEBURIC [Concomitant]
     Active Substance: FEBUXOSTAT
     Dosage: 10MG/DAY
     Route: 048
  11. EDOXABAN [Suspect]
     Active Substance: EDOXABAN TOSYLATE
     Indication: ATRIAL FIBRILLATION
     Dosage: 60 MG, QD
     Route: 048
     Dates: start: 20151120, end: 20161013
  12. XARELTO [Concomitant]
     Active Substance: RIVAROXABAN
     Dosage: 15MG/DAY
     Route: 048
     Dates: end: 20151119

REACTIONS (2)
  - Faeces discoloured [Recovered/Resolved]
  - Gastrointestinal tract adenoma [Recovered/Resolved]

NARRATIVE: CASE EVENT DATE: 20170321
